FAERS Safety Report 8481226-7 (Version None)
Quarter: 2012Q3

REPORT INFORMATION
  Report Type: 
  Country: None (occurrence: None)
  Receive Date: 20120702
  Receipt Date: 20120625
  Transmission Date: 20120928
  Serious: No
  Sender: FDA-Public Use
  Company Number: US-B.I. PHARMACEUTICALS,INC./RIDGEFIELD-2012-BP-14415BP

PATIENT
  Sex: Female

DRUGS (8)
  1. PRADAXA [Suspect]
     Indication: ATRIAL FIBRILLATION
     Route: 048
     Dates: start: 20110101
  2. EXELON [Concomitant]
     Indication: DEMENTIA
  3. EXELON [Concomitant]
     Indication: DEMENTIA ALZHEIMER'S TYPE
  4. NAMENDA [Concomitant]
     Indication: DEMENTIA
  5. TRAMADOL HCL [Concomitant]
  6. POTASSIUM [Concomitant]
     Indication: SUPPLEMENTATION THERAPY
  7. SYNTHROID [Concomitant]
     Indication: HYPOTHYROIDISM
  8. NAMENDA [Concomitant]
     Indication: DEMENTIA ALZHEIMER'S TYPE

REACTIONS (3)
  - FALL [None]
  - OEDEMA PERIPHERAL [None]
  - WRIST FRACTURE [None]
